FAERS Safety Report 23590344 (Version 1)
Quarter: 2024Q1

REPORT INFORMATION
  Report Type: Spontaneous
  Country: US (occurrence: None)
  Receive Date: 20240301
  Receipt Date: 20240301
  Transmission Date: 20240409
  Serious: Yes (Other)
  Sender: FDA-Public Use
  Company Number: None

PATIENT
  Age: 73 Year
  Sex: Female

DRUGS (20)
  1. AMBRISENTAN [Suspect]
     Active Substance: AMBRISENTAN
     Indication: Pulmonary arterial hypertension
     Dosage: FREQUENCY : DAILY;?
     Route: 048
     Dates: start: 20150130
  2. FUROSEMIDE [Concomitant]
     Active Substance: FUROSEMIDE
  3. SPIRONOLACTONE [Concomitant]
     Active Substance: SPIRONOLACTONE
  4. WARFARIN [Concomitant]
     Active Substance: WARFARIN
  5. FLUOXETINE [Concomitant]
     Active Substance: FLUOXETINE HYDROCHLORIDE
  6. BISOPROLOL [Concomitant]
  7. LOPERAMIDE [Concomitant]
     Active Substance: LOPERAMIDE
  8. ANASTROZOLE [Concomitant]
     Active Substance: ANASTROZOLE
  9. diltiazepam [Concomitant]
  10. TYLENOL [Concomitant]
  11. ALVESCO [Concomitant]
     Active Substance: CICLESONIDE
  12. CALCITRIOL [Concomitant]
     Active Substance: CALCITRIOL
  13. ATORVASTATIN [Concomitant]
     Active Substance: ATORVASTATIN
  14. LEVOTHYROXINE [Concomitant]
     Active Substance: LEVOTHYROXINE\LEVOTHYROXINE SODIUM
  15. humulin [Concomitant]
  16. ALLOPURINOL [Concomitant]
  17. CALCIUM CARBONATE [Concomitant]
     Active Substance: CALCIUM CARBONATE
  18. ascorbid acid [Concomitant]
  19. FERRIC POLYSACCHARIDE COMPLEX [Concomitant]
     Active Substance: FERRIC POLYSACCHARIDE COMPLEX
  20. BIOTIN [Concomitant]
     Active Substance: BIOTIN

REACTIONS (2)
  - Cardiac failure congestive [None]
  - Respiratory failure [None]

NARRATIVE: CASE EVENT DATE: 20240221
